FAERS Safety Report 7108473-0 (Version None)
Quarter: 2010Q4

REPORT INFORMATION
  Report Type: 
  Country: None (occurrence: None)
  Receive Date: 20101117
  Receipt Date: 20101115
  Transmission Date: 20110411
  Serious: Yes (Other)
  Sender: FDA-Public Use
  Company Number: US-BRISTOL-MYERS SQUIBB COMPANY-15386725

PATIENT
  Sex: Female

DRUGS (2)
  1. MEGESTROL ACETATE [Suspect]
     Indication: WEIGHT DECREASED
     Dates: start: 20101013
  2. PREDNISONE [Concomitant]

REACTIONS (2)
  - HAEMORRHAGE [None]
  - KIDNEY INFECTION [None]
